FAERS Safety Report 21228915 (Version 3)
Quarter: 2022Q4

REPORT INFORMATION
  Report Type: Spontaneous
  Country: FR (occurrence: FR)
  Receive Date: 20220818
  Receipt Date: 20221026
  Transmission Date: 20230112
  Serious: Yes (Other)
  Sender: FDA-Public Use
  Company Number: FR-SANOFI-01149290

PATIENT
  Age: 38 Year
  Sex: Female
  Weight: 62 kg

DRUGS (7)
  1. DUPIXENT [Suspect]
     Active Substance: DUPILUMAB
     Indication: Eczema
     Dosage: 300 MG, Q3W
     Route: 058
     Dates: start: 202012
  2. BRINTELLIX [Concomitant]
     Active Substance: VORTIOXETINE HYDROBROMIDE
     Dosage: DOSAGE: 1 TABLET+10MG+5MG, START DATE: 2020
     Route: 048
     Dates: start: 2020
  3. DUPHASTON [Concomitant]
     Active Substance: DYDROGESTERONE
     Dosage: 1 TABLET FROM THE 15TH TO THE 30TH DAY OF THE CYCLE
     Route: 048
  4. ALBUTEROL [Concomitant]
     Active Substance: ALBUTEROL
     Dosage: DOSAGE: 1 PUFF
     Route: 055
  5. LATANOPROST [Concomitant]
     Active Substance: LATANOPROST
     Dosage: 1 DROP IN THE EVENING , 1 DF , QD
  6. BILASTINE [Concomitant]
     Active Substance: BILASTINE
     Indication: Hypersensitivity
     Dosage: 1 G
     Route: 048
     Dates: start: 2021
  7. OXAZEPAM [Concomitant]
     Active Substance: OXAZEPAM
     Dosage: 1 DF , QD

REACTIONS (15)
  - Thrombosis [Unknown]
  - Injection site pain [Recovered/Resolved]
  - Needle issue [Recovered/Resolved]
  - Injection site vesicles [Recovered/Resolved]
  - Injection site discolouration [Unknown]
  - Malaise [Unknown]
  - Injection site hypersensitivity [Unknown]
  - Amenorrhoea [Recovered/Resolved]
  - Breast discomfort [Unknown]
  - Injection site erythema [Unknown]
  - Injection site swelling [Unknown]
  - Injection site mass [Recovered/Resolved]
  - Eczema [Unknown]
  - Drug ineffective [Unknown]
  - Product use issue [Unknown]

NARRATIVE: CASE EVENT DATE: 20201201
